FAERS Safety Report 23709625 (Version 2)
Quarter: 2024Q2

REPORT INFORMATION
  Report Type: Spontaneous
  Country: US (occurrence: US)
  Receive Date: 20240404
  Receipt Date: 20240405
  Transmission Date: 20240716
  Serious: Yes (Other)
  Sender: FDA-Public Use
  Company Number: US-ABBVIE-5705574

PATIENT
  Age: 77 Year
  Sex: Female

DRUGS (3)
  1. SYNTHROID [Suspect]
     Active Substance: LEVOTHYROXINE SODIUM
     Indication: Product used for unknown indication
     Route: 048
  2. POTASSIUM [Concomitant]
     Active Substance: POTASSIUM
     Indication: Product used for unknown indication
  3. ZIAC [Concomitant]
     Active Substance: BISOPROLOL FUMARATE\HYDROCHLOROTHIAZIDE
     Indication: Product used for unknown indication

REACTIONS (9)
  - Thyroid disorder [Unknown]
  - Allergy to chemicals [Unknown]
  - Toxicity to various agents [Unknown]
  - Herpes zoster [Unknown]
  - Allergic oedema [Unknown]
  - Atypical pneumonia [Unknown]
  - Rash papular [Unknown]
  - Urticaria [Unknown]
  - Pruritus allergic [Unknown]

NARRATIVE: CASE EVENT DATE: 20240101
